FAERS Safety Report 7788960-2 (Version None)
Quarter: 2011Q3

REPORT INFORMATION
  Report Type: 
  Country: None (occurrence: None)
  Receive Date: 20110930
  Receipt Date: 20110919
  Transmission Date: 20111222
  Serious: Yes (Other)
  Sender: FDA-Public Use
  Company Number: PHHY2011CA84402

PATIENT

DRUGS (4)
  1. ALISKIREN [Suspect]
  2. DIURETICS [Concomitant]
  3. ANGIOTENSIN CONVERTING ENZYME BLOCKERS [Concomitant]
  4. CALCIUM CHANNEL BLOCKERS [Concomitant]

REACTIONS (3)
  - LOCALISED INFECTION [None]
  - RENAL FAILURE ACUTE [None]
  - HYPERKALAEMIA [None]
